FAERS Safety Report 25878730 (Version 2)
Quarter: 2025Q4

REPORT INFORMATION
  Report Type: Spontaneous
  Country: BR (occurrence: BR)
  Receive Date: 20251003
  Receipt Date: 20251121
  Transmission Date: 20260117
  Serious: Yes (Death, Hospitalization, Other)
  Sender: TEVA
  Company Number: BR-TEVA-VS-3377848

PATIENT
  Age: 78 Year
  Sex: Male

DRUGS (9)
  1. AZILECT [Suspect]
     Active Substance: RASAGILINE MESYLATE
     Indication: Parkinson^s disease
     Dosage: 1 MG EVERY DAY
     Route: 048
     Dates: start: 2023
  2. BENSERAZIDE\LEVODOPA [Concomitant]
     Active Substance: BENSERAZIDE\LEVODOPA
     Indication: Product used for unknown indication
     Dosage: DOSE: 200/25 MG, TAKEN FOUR TIMES A DAY: 6 A.M., 9 A.M., 12 P.M., AND 3 P.M.
     Route: 048
  3. AMANTADINE [Concomitant]
     Active Substance: AMANTADINE
     Indication: Product used for unknown indication
     Dosage: ASSOCIATED
     Route: 048
  4. Vatis [Concomitant]
     Indication: Product used for unknown indication
     Route: 048
  5. DAPAGLIFLOZIN [Concomitant]
     Active Substance: DAPAGLIFLOZIN
     Indication: Product used for unknown indication
     Route: 048
  6. ATORVASTATIN [Concomitant]
     Active Substance: ATORVASTATIN
     Indication: Product used for unknown indication
     Route: 048
  7. Children^s acetylsalicylic acid (platelet) [Concomitant]
     Indication: Product used for unknown indication
     Dosage: CHILDREN^S ACETYLSALICYLIC ACID (PLATELET)
     Route: 048
  8. VITAMINS [Concomitant]
     Active Substance: VITAMINS
     Indication: Product used for unknown indication
     Dosage: A-U-26; AT NIGHT,
     Route: 048
  9. QUETIAPINE [Concomitant]
     Active Substance: QUETIAPINE
     Indication: Sleep disorder
     Dosage: LIQUID
     Route: 048

REACTIONS (8)
  - Death [Fatal]
  - Dehydration [Unknown]
  - Urinary tract infection [Unknown]
  - Dysphagia [Unknown]
  - Dementia [Unknown]
  - Cognitive disorder [Unknown]
  - Partial seizures [Unknown]
  - Wrong technique in product usage process [Unknown]

NARRATIVE: CASE EVENT DATE: 20250701
